FAERS Safety Report 9923983 (Version 2)
Quarter: 2014Q1

REPORT INFORMATION
  Report Type: Report from Study
  Country: JP (occurrence: JP)
  Receive Date: 20140225
  Receipt Date: 20140225
  Transmission Date: 20141002
  Serious: Yes (Death, Other)
  Sender: FDA-Public Use
  Company Number: JP-GILEAD-2011-0048523

PATIENT
  Age: 36 Year
  Sex: Female
  Weight: 67 kg

DRUGS (7)
  1. AMBRISENTAN [Suspect]
     Indication: PULMONARY ARTERIAL HYPERTENSION
     Dosage: 1.25 MG, QD
     Route: 048
     Dates: start: 20111202, end: 20120105
  2. AMBRISENTAN [Suspect]
     Dosage: 5 MG, QD
     Route: 048
     Dates: start: 20111118, end: 20111201
  3. AMBRISENTAN [Suspect]
     Dosage: UNK
  4. FLOLAN [Suspect]
     Indication: PULMONARY ARTERIAL HYPERTENSION
     Route: 042
     Dates: end: 20120105
  5. REVATIO [Suspect]
     Indication: PULMONARY ARTERIAL HYPERTENSION
     Route: 048
     Dates: end: 20120105
  6. BIOFERMIN                          /01617201/ [Concomitant]
     Indication: DYSCHEZIA
     Route: 048
     Dates: end: 20120105
  7. COVERSYL                           /00790702/ [Concomitant]
     Indication: PULMONARY ARTERIAL HYPERTENSION
     Route: 048
     Dates: end: 20120105

REACTIONS (2)
  - Pulmonary haemorrhage [Fatal]
  - Oedema [Not Recovered/Not Resolved]
